FAERS Safety Report 8341753-X (Version None)
Quarter: 2012Q2

REPORT INFORMATION
  Report Type: 
  Country: None (occurrence: None)
  Receive Date: 20120507
  Receipt Date: 20120427
  Transmission Date: 20120825
  Serious: Yes (Other)
  Sender: FDA-Public Use
  Company Number: ES-TEVA-336078USA

PATIENT
  Sex: Female

DRUGS (5)
  1. ETOPOSIDE [Suspect]
     Indication: LYMPHOMA
  2. MELPHALAN HYDROCHLORIDE [Suspect]
     Indication: LYMPHOMA
  3. TREANDA [Suspect]
     Indication: LYMPHOMA
     Route: 042
     Dates: start: 20120306, end: 20120307
  4. CYTARABINE [Suspect]
     Indication: LYMPHOMA
  5. NITROGLYCERIN [Concomitant]

REACTIONS (1)
  - RESPIRATORY FAILURE [None]
